FAERS Safety Report 4688292-5 (Version None)
Quarter: 2005Q2

REPORT INFORMATION
  Report Type: 
  Country: None (occurrence: None)
  Receive Date: 20050610
  Receipt Date: 20050310
  Transmission Date: 20051028
  Serious: Yes (Hospitalization)
  Sender: FDA-Public Use
  Company Number: US-MERCK-0503USA02363

PATIENT
  Age: 55 Year
  Sex: Male
  Weight: 105 kg

DRUGS (8)
  1. VIOXX [Suspect]
     Indication: BACK PAIN
     Route: 048
     Dates: start: 20000215, end: 20040901
  2. VIOXX [Suspect]
     Indication: PAIN IN EXTREMITY
     Route: 048
     Dates: start: 20000215, end: 20040901
  3. GLUCOVANCE [Concomitant]
     Route: 065
  4. AVANDIA [Concomitant]
     Route: 065
  5. TRICOR [Concomitant]
     Route: 065
  6. ZOLOFT [Concomitant]
     Route: 065
  7. ASPIRIN [Concomitant]
     Route: 065
  8. LOTREL [Concomitant]
     Route: 065

REACTIONS (8)
  - ANXIETY [None]
  - CORONARY ARTERY DISEASE [None]
  - DEPRESSION [None]
  - MYOCARDIAL INFARCTION [None]
  - PERSONALITY DISORDER [None]
  - POST-TRAUMATIC STRESS DISORDER [None]
  - SUICIDAL IDEATION [None]
  - TENSION HEADACHE [None]
